FAERS Safety Report 6632350-2 (Version None)
Quarter: 2010Q1

REPORT INFORMATION
  Report Type: 
  Country: None (occurrence: None)
  Receive Date: 20100312
  Receipt Date: 20100302
  Transmission Date: 20100710
  Serious: Yes (Life-Threatening, Hospitalization)
  Sender: FDA-Public Use
  Company Number: ES-MILLENNIUM PHARMACEUTICALS, INC.-2010-01494

PATIENT

DRUGS (4)
  1. VELCADE [Suspect]
     Indication: MULTIPLE MYELOMA
     Dosage: 1.3 MG/M2, UNK
     Dates: end: 20100226
  2. DEXAMETHASONE [Concomitant]
     Indication: MULTIPLE MYELOMA
     Dosage: UNK
     Dates: start: 20100101
  3. VITAMIN B                          /00056102/ [Concomitant]
  4. PLANTAGO OVATA HUSK [Concomitant]
     Indication: CONSTIPATION

REACTIONS (3)
  - CONSTIPATION [None]
  - INTESTINAL PERFORATION [None]
  - THROMBOCYTOPENIA [None]
